FAERS Safety Report 7642664-5 (Version None)
Quarter: 2011Q3

REPORT INFORMATION
  Report Type: 
  Country: None (occurrence: None)
  Receive Date: 20110728
  Receipt Date: 20110721
  Transmission Date: 20111222
  Serious: No
  Sender: FDA-Public Use
  Company Number: US-PFIZER INC-2011118636

PATIENT
  Sex: Female

DRUGS (5)
  1. FLEXERIL [Concomitant]
     Indication: BACK DISORDER
     Dosage: UNK
     Dates: start: 20070101
  2. CHANTIX [Suspect]
     Dosage: 1 MG, 1X/DAY
     Dates: start: 20080401, end: 20080601
  3. CHANTIX [Suspect]
     Indication: SMOKING CESSATION THERAPY
     Dosage: 1 MG, 2X/DAY
     Dates: start: 20080310, end: 20080301
  4. XANAX [Concomitant]
     Indication: ANXIETY
     Dosage: UNK
     Dates: start: 20030101
  5. TRAMADOL [Concomitant]
     Indication: BACK DISORDER
     Dosage: UNK
     Dates: start: 20070101

REACTIONS (4)
  - AGGRESSION [None]
  - ANXIETY [None]
  - ABNORMAL BEHAVIOUR [None]
  - EMOTIONAL DISTRESS [None]
